FAERS Safety Report 22636395 (Version 1)
Quarter: 2023Q2

REPORT INFORMATION
  Report Type: Spontaneous
  Country: TW (occurrence: TW)
  Receive Date: 20230623
  Receipt Date: 20230623
  Transmission Date: 20230722
  Serious: Yes (Other)
  Sender: FDA-Public Use
  Company Number: TW-ELITE LABORATORIES INC.-2023ELT00118

PATIENT
  Age: 45 Year
  Sex: Female

DRUGS (2)
  1. NALTREXONE [Suspect]
     Active Substance: NALTREXONE
     Indication: Alcohol use disorder
     Dosage: 25 MG
  2. NALTREXONE [Suspect]
     Active Substance: NALTREXONE
     Dosage: RE-ATTEMPT; DOSE NOT SPECIFIED

REACTIONS (1)
  - Psychotic disorder [Recovered/Resolved]
